FAERS Safety Report 7214687-1 (Version None)
Quarter: 2011Q1

REPORT INFORMATION
  Report Type: 
  Country: None (occurrence: None)
  Receive Date: 20110107
  Receipt Date: 20100111
  Transmission Date: 20110831
  Serious: No
  Sender: FDA-Public Use
  Company Number: A0815383A

PATIENT
  Age: 72 Year
  Sex: Female

DRUGS (10)
  1. LOVAZA [Suspect]
     Dosage: 2CAP PER DAY
     Route: 048
     Dates: start: 20091025, end: 20091028
  2. JANUVIA [Concomitant]
  3. OMEPRAZOLE [Concomitant]
  4. METFORMIN [Concomitant]
  5. LEVOTHYROXINE [Concomitant]
  6. DIURETIC [Concomitant]
  7. COUMADIN [Concomitant]
  8. ATENOLOL [Concomitant]
  9. LISINOPRIL [Concomitant]
  10. GLIMEPIRIDE [Concomitant]

REACTIONS (4)
  - MALAISE [None]
  - DRUG HYPERSENSITIVITY [None]
  - VOMITING [None]
  - RETCHING [None]
